FAERS Safety Report 6445247-8 (Version None)
Quarter: 2009Q4

REPORT INFORMATION
  Report Type: 
  Country: None (occurrence: None)
  Receive Date: 20091118
  Receipt Date: 20091105
  Transmission Date: 20100525
  Serious: Yes (Death)
  Sender: FDA-Public Use
  Company Number: CO-JNJFOC-20090807033

PATIENT
  Age: 30 Year
  Sex: Female

DRUGS (1)
  1. DORIBAX [Suspect]
     Indication: PNEUMONIA
     Route: 041

REACTIONS (1)
  - PNEUMONIA [None]
